FAERS Safety Report 12271412 (Version 1)
Quarter: 2016Q2

REPORT INFORMATION
  Report Type: Spontaneous
  Country: FR (occurrence: FR)
  Receive Date: 20160415
  Receipt Date: 20160415
  Transmission Date: 20160815
  Serious: Yes (Hospitalization)
  Sender: FDA-Public Use
  Company Number: FR-PFIZER INC-2016202400

PATIENT
  Age: 86 Year
  Sex: Female

DRUGS (1)
  1. SUTENT [Suspect]
     Active Substance: SUNITINIB MALATE
     Indication: RENAL CANCER METASTATIC

REACTIONS (5)
  - Alopecia [Unknown]
  - Vomiting [Unknown]
  - Aphthous ulcer [Unknown]
  - Diarrhoea [Unknown]
  - Amnesia [Unknown]
